FAERS Safety Report 6509031-9 (Version None)
Quarter: 2009Q4

REPORT INFORMATION
  Report Type: 
  Country: None (occurrence: None)
  Receive Date: 20091221
  Receipt Date: 20090828
  Transmission Date: 20100525
  Serious: No
  Sender: FDA-Public Use
  Company Number: US-ASTRAZENECA-2009SE10529

PATIENT
  Sex: Female

DRUGS (4)
  1. CRESTOR [Suspect]
     Indication: BLOOD CHOLESTEROL
     Route: 048
     Dates: start: 20090818
  2. ATENOLOL [Concomitant]
     Indication: BLOOD PRESSURE
  3. VALIUM [Concomitant]
     Indication: ANXIETY
  4. LORTAB [Concomitant]
     Indication: PAIN

REACTIONS (1)
  - PAIN IN EXTREMITY [None]
